FAERS Safety Report 5655951-7 (Version None)
Quarter: 2008Q1

REPORT INFORMATION
  Report Type: 
  Country: None (occurrence: None)
  Receive Date: 20080307
  Receipt Date: 20080303
  Transmission Date: 20080703
  Serious: Yes (Other)
  Sender: FDA-Public Use
  Company Number: GB-BOEHRINGER INGELHEIM GMBH, GERMANY-2008-DE-01312GD

PATIENT

DRUGS (2)
  1. RANITIDINE [Suspect]
  2. LANSOPRAZOLE [Suspect]

REACTIONS (1)
  - GASTROENTERITIS BACTERIAL [None]
